FAERS Safety Report 7765695-3 (Version None)
Quarter: 2011Q3

REPORT INFORMATION
  Report Type: 
  Country: None (occurrence: None)
  Receive Date: 20110921
  Receipt Date: 20110907
  Transmission Date: 20111222
  Serious: Yes (Other)
  Sender: FDA-Public Use
  Company Number: CO-GENENTECH-324382

PATIENT
  Sex: Male

DRUGS (2)
  1. CYCLOSPORINE [Concomitant]
     Indication: PRODUCT USED FOR UNKNOWN INDICATION
     Dosage: 250 MG, QD
  2. XOLAIR [Suspect]
     Indication: ASTHMA
     Dosage: 3 DF, Q2W
     Route: 058
     Dates: start: 20100629, end: 20110902

REACTIONS (3)
  - AURICULAR SWELLING [None]
  - URTICARIA [None]
  - ASTHENIA [None]
